FAERS Safety Report 10377594 (Version 1)
Quarter: 2014Q1

REPORT INFORMATION
  Report Type: Spontaneous
  Country: US (occurrence: None)
  Receive Date: 20140306
  Receipt Date: 20140306
  Transmission Date: 20141002
  Serious: Yes (Disabling, Other)
  Sender: FDA-Public Use
  Company Number: 163-21880-13032119

PATIENT
  Age: 76 Year
  Sex: Female
  Weight: 67.72 kg

DRUGS (17)
  1. REVLIMID (LENALIDOMIDE) (25 MILLIGRAM, CAPSULES) [Suspect]
     Indication: PLASMA CELL MYELOMA
     Dosage: 25 MG, 21 IN 28 D, PO
     Route: 048
     Dates: start: 20130216, end: 20130411
  2. REVLIMID (LENALIDOMIDE) (25 MILLIGRAM, CAPSULES) [Suspect]
     Indication: PLASMA CELL MYELOMA RECURRENT
     Dosage: 25 MG, 21 IN 28 D, PO
     Route: 048
     Dates: start: 20130216, end: 20130411
  3. AMOXICILLIN/POTASSIUM CLAVULANATE) [Concomitant]
  4. MIRALAX (MACROGOL) (POWDER) [Concomitant]
  5. MULTIVITAMINS (MULTIVITAMINS) [Concomitant]
  6. OXYCODONE HCL (OXYCODONE HYDROCHLORIDE) [Concomitant]
  7. POTASSIUM CHLORIDE (POTASSIUM CHLORIDE) (CAPSULES) [Concomitant]
  8. PROMETHAZINE HCL (PROMETHAZINE HYDROCHLORIDE) [Concomitant]
  9. VALIUM (DIAZEPAM) (TABLETS) [Concomitant]
  10. ZOMETA (ZOLEDRONIC ACID) [Concomitant]
  11. PROCHLORPERAZINE MALEATE (PROCHLORPERAZINE MALEATE) (TABLETS) [Concomitant]
  12. MILK OF MAGNESIA (MAGNESIUM HYDROXIDE) (SUSPENSION) [Concomitant]
  13. DEXAMETHASONE (DEXAMETHASONE) [Concomitant]
  14. VELCADE (BORTEZOMIB) [Concomitant]
  15. COLACE (DOCUSATE SODIUM) [Concomitant]
  16. ZOFRAN (ONDANSETRON HYDROCHLORIDE) [Concomitant]
  17. FENTANYL [Concomitant]

REACTIONS (11)
  - Back pain [None]
  - Anaemia [None]
  - Headache [None]
  - Pain in extremity [None]
  - Rash pruritic [None]
  - Pruritus [None]
  - Decreased appetite [None]
  - Fatigue [None]
  - Nausea [None]
  - Abdominal discomfort [None]
  - Constipation [None]
